FAERS Safety Report 7806296-8 (Version None)
Quarter: 2011Q4

REPORT INFORMATION
  Report Type: 
  Country: None (occurrence: None)
  Receive Date: 20111006
  Receipt Date: 20111006
  Transmission Date: 20120403
  Serious: Yes (Other)
  Sender: FDA-Public Use
  Company Number: None

PATIENT
  Sex: Female

DRUGS (1)
  1. SUMATRIPTAN SUCCINATE [Suspect]
     Indication: MIGRAINE
     Dosage: 100MG ONSET OF HEADACHE ORAL
     Route: 048
     Dates: start: 20100101

REACTIONS (2)
  - ABDOMINAL DISCOMFORT [None]
  - PRODUCT SUBSTITUTION ISSUE [None]
